FAERS Safety Report 5927947-9 (Version None)
Quarter: 2008Q4

REPORT INFORMATION
  Report Type: 
  Country: None (occurrence: None)
  Receive Date: 20081022
  Receipt Date: 20081022
  Transmission Date: 20090506
  Serious: Yes (Hospitalization)
  Sender: FDA-Public Use
  Company Number: None

PATIENT
  Age: 23 Year
  Sex: Male
  Weight: 93.44 kg

DRUGS (1)
  1. DEXTROMETHORPHAN/GUAIFENESIN [Suspect]

REACTIONS (3)
  - DELIRIUM [None]
  - INCORRECT DOSE ADMINISTERED [None]
  - SINUS TACHYCARDIA [None]
